FAERS Safety Report 24083790 (Version 6)
Quarter: 2025Q1

REPORT INFORMATION
  Report Type: Report from Study
  Country: DE (occurrence: DE)
  Receive Date: 20240712
  Receipt Date: 20250121
  Transmission Date: 20250408
  Serious: Yes (Life-Threatening, Hospitalization, Other)
  Sender: CLINUVEL
  Company Number: DE-CLINUVEL INC-2159071

PATIENT
  Age: 21 Year
  Sex: Male
  Weight: 70 kg

DRUGS (5)
  1. SCENESSE [Suspect]
     Active Substance: AFAMELANOTIDE
     Indication: Porphyria non-acute
     Dates: start: 20210222, end: 20240701
  2. CHOLECALCIFEROL [Concomitant]
     Active Substance: CHOLECALCIFEROL
     Dates: start: 20220511
  3. Biontech [Concomitant]
     Dates: start: 20220115, end: 20220115
  4. Biontech [Concomitant]
     Dates: start: 20210716, end: 20210716
  5. Astra-Zenica [Concomitant]
     Dates: start: 20210522, end: 20210522

REACTIONS (11)
  - Anaphylactic reaction [Recovered/Resolved]
  - Nausea [Recovered/Resolved]
  - Urticaria [Recovered/Resolved]
  - Flushing [Recovered/Resolved]
  - Paraesthesia [Recovered/Resolved]
  - Sensation of foreign body [Recovered/Resolved]
  - Dizziness [Recovered/Resolved]
  - Diarrhoea [Recovered/Resolved]
  - Vomiting [Recovered/Resolved]
  - Presyncope [Recovered/Resolved]
  - Dyspnoea [Recovered/Resolved]

NARRATIVE: CASE EVENT DATE: 20240701
